FAERS Safety Report 15057972 (Version 1)
Quarter: 2018Q2

REPORT INFORMATION
  Report Type: Spontaneous
  Country: CA (occurrence: CA)
  Receive Date: 20180625
  Receipt Date: 20180625
  Transmission Date: 20180711
  Serious: Yes (Other)
  Sender: FDA-Public Use
  Company Number: CA-ROCHE-2143314

PATIENT
  Age: 66 Year
  Sex: Female

DRUGS (2)
  1. XOLAIR [Suspect]
     Active Substance: OMALIZUMAB
     Indication: CHRONIC SPONTANEOUS URTICARIA
     Route: 058
     Dates: start: 20180611
  2. CETIRIZINE [Concomitant]
     Active Substance: CETIRIZINE HYDROCHLORIDE
     Indication: CHRONIC SPONTANEOUS URTICARIA
     Dosage: 1 DF, BID
     Route: 048
     Dates: start: 20171023

REACTIONS (13)
  - Hypersensitivity [Unknown]
  - Rhinorrhoea [Unknown]
  - Restlessness [Unknown]
  - Nasopharyngitis [Recovered/Resolved]
  - Headache [Not Recovered/Not Resolved]
  - Angioedema [Unknown]
  - Pruritus [Recovered/Resolved]
  - Lip swelling [Not Recovered/Not Resolved]
  - Fatigue [Unknown]
  - Pyrexia [Unknown]
  - Urticaria [Unknown]
  - Granuloma annulare [Recovering/Resolving]
  - Sneezing [Recovered/Resolved]

NARRATIVE: CASE EVENT DATE: 20180611
